FAERS Safety Report 7568923-2 (Version None)
Quarter: 2011Q2

REPORT INFORMATION
  Report Type: 
  Country: None (occurrence: None)
  Receive Date: 20110623
  Receipt Date: 20110621
  Transmission Date: 20111010
  Serious: Yes (Hospitalization, Other)
  Sender: FDA-Public Use
  Company Number: US-PFIZER INC-2010152263

PATIENT
  Sex: Female
  Weight: 72.5 kg

DRUGS (7)
  1. EFFEXOR XR [Suspect]
     Indication: BIPOLAR DISORDER
  2. VYVANSE [Concomitant]
  3. TRAZODONE [Concomitant]
  4. EFFEXOR XR [Suspect]
     Indication: MAJOR DEPRESSION
     Dosage: 150 MG, 2X/DAY
     Route: 048
  5. ZOLOFT [Suspect]
  6. XANAX [Concomitant]
  7. LAMICTAL [Concomitant]

REACTIONS (6)
  - PSYCHOTIC DISORDER [None]
  - WITHDRAWAL SYNDROME [None]
  - TARDIVE DYSKINESIA [None]
  - HALLUCINATION [None]
  - BIPOLAR DISORDER [None]
  - TIC [None]
